FAERS Safety Report 15800882 (Version 2)
Quarter: 2019Q1

REPORT INFORMATION
  Report Type: Spontaneous
  Country: US (occurrence: US)
  Receive Date: 20190109
  Receipt Date: 20190111
  Transmission Date: 20190417
  Serious: Yes (Other)
  Sender: FDA-Public Use
  Company Number: US-PFIZER INC-2019006767

PATIENT
  Age: 64 Year
  Sex: Male
  Weight: 97.52 kg

DRUGS (6)
  1. METOPROLOL. [Concomitant]
     Active Substance: METOPROLOL
     Dosage: 10 MG, 1X/DAY (ONCE DAILY AT NIGHT)
     Route: 048
  2. TELMISARTAN. [Concomitant]
     Active Substance: TELMISARTAN
     Dosage: 80 MG, 1X/DAY (ONCE DAILY AT NIGHT)
     Route: 048
  3. ADVIL [Suspect]
     Active Substance: IBUPROFEN
     Indication: PAIN
     Dosage: 2 DF, AS NEEDED (2 TAKEN BY MOUTH AS NEEDED, USUALLY ONCE A WEEK EVERY THURSDAY)
     Route: 048
  4. ADVIL [Suspect]
     Active Substance: IBUPROFEN
     Dosage: ABOUT TWO A WEEK ON BOWLING NIGHT
     Route: 048
     Dates: start: 201806
  5. AMLODIPINE BESYLATE. [Concomitant]
     Active Substance: AMLODIPINE BESYLATE
     Indication: CARDIAC DISORDER
     Dosage: 2.5 MG, 1X/DAY (ONCE DAILY AT NIGHT)
     Route: 048
  6. SINGULAIR [Concomitant]
     Active Substance: MONTELUKAST SODIUM
     Indication: ASTHMA
     Dosage: 1 TABLET, 1X/DAY
     Route: 048

REACTIONS (4)
  - Haematuria [Not Recovered/Not Resolved]
  - Dysuria [Not Recovered/Not Resolved]
  - Urinary retention [Not Recovered/Not Resolved]
  - Medication crystals in urine present [Not Recovered/Not Resolved]

NARRATIVE: CASE EVENT DATE: 20181214
